FAERS Safety Report 23241694 (Version 1)
Quarter: 2023Q4

REPORT INFORMATION
  Report Type: Report from Study
  Country: DE (occurrence: DE)
  Receive Date: 20231129
  Receipt Date: 20231129
  Transmission Date: 20240110
  Serious: Yes (Hospitalization, Other)
  Sender: FDA-Public Use
  Company Number: DE-ABBVIE-5510944

PATIENT
  Age: 72 Year
  Sex: Male
  Weight: 125 kg

DRUGS (32)
  1. SKYRIZI [Suspect]
     Active Substance: RISANKIZUMAB-RZAA
     Indication: Psoriasis
     Route: 058
     Dates: start: 20220519
  2. SKYRIZI [Suspect]
     Active Substance: RISANKIZUMAB-RZAA
     Route: 058
     Dates: start: 20200428, end: 20210625
  3. SKYRIZI [Suspect]
     Active Substance: RISANKIZUMAB-RZAA
     Route: 058
  4. POTASSIUM [Concomitant]
     Active Substance: POTASSIUM
     Indication: Product used for unknown indication
  5. FUROSEMIDE [Concomitant]
     Active Substance: FUROSEMIDE
     Indication: Product used for unknown indication
  6. LEVOTHYROXINE SODIUM [Concomitant]
     Active Substance: LEVOTHYROXINE SODIUM
     Indication: Product used for unknown indication
  7. RAMIPRIL [Concomitant]
     Active Substance: RAMIPRIL
     Indication: Product used for unknown indication
  8. BICALUTAMIDE [Concomitant]
     Active Substance: BICALUTAMIDE
     Indication: Product used for unknown indication
  9. SIMVASTATIN [Concomitant]
     Active Substance: SIMVASTATIN
     Indication: Product used for unknown indication
  10. AMLODIPINE BESYLATE [Concomitant]
     Active Substance: AMLODIPINE BESYLATE
     Indication: Product used for unknown indication
  11. EFEROX [Concomitant]
     Active Substance: LEVOTHYROXINE SODIUM
     Indication: Product used for unknown indication
     Dates: start: 202302
  12. ALLOPURINOL [Concomitant]
     Active Substance: ALLOPURINOL
     Indication: Product used for unknown indication
     Dates: start: 202302
  13. ALLOPURINOL [Concomitant]
     Active Substance: ALLOPURINOL
     Indication: Product used for unknown indication
     Dates: start: 202301, end: 202302
  14. URAPIDIL HYDROCHLORIDE [Concomitant]
     Active Substance: URAPIDIL HYDROCHLORIDE
     Indication: Product used for unknown indication
     Dosage: TIME INTERVAL: 0.33333333 DAYS
     Dates: start: 202302
  15. URAPIDIL HYDROCHLORIDE [Concomitant]
     Active Substance: URAPIDIL HYDROCHLORIDE
     Indication: Product used for unknown indication
     Dates: end: 202301
  16. BICALUTAMID PUREN [Concomitant]
     Indication: Product used for unknown indication
     Dosage: TIME INTERVAL: 0.33333333 DAYS
     Dates: start: 202302
  17. Allopurinol indoco [Concomitant]
     Indication: Product used for unknown indication
     Dates: end: 202301
  18. FUROSEMIDE [Concomitant]
     Active Substance: FUROSEMIDE
     Indication: Product used for unknown indication
     Dates: start: 202302
  19. TAMSULOSIN [Concomitant]
     Active Substance: TAMSULOSIN
     Indication: Product used for unknown indication
     Dates: end: 202301
  20. SIMVASTATIN [Concomitant]
     Active Substance: SIMVASTATIN
     Indication: Product used for unknown indication
     Dates: end: 202301
  21. Amlodipin hexal [Concomitant]
     Indication: Product used for unknown indication
     Dosage: 10 MILLIGRAM
     Dates: start: 202302
  22. Nepresol [Concomitant]
     Indication: Product used for unknown indication
     Dates: start: 202302
  23. Nepresol [Concomitant]
     Indication: Product used for unknown indication
     Dates: end: 202301
  24. TAMSULOSIN HYDROCHLORIDE [Concomitant]
     Active Substance: TAMSULOSIN HYDROCHLORIDE
     Indication: Product used for unknown indication
     Dates: start: 202302
  25. BISOPROLOL FUMARATE [Concomitant]
     Active Substance: BISOPROLOL FUMARATE
     Indication: Product used for unknown indication
     Dates: end: 202301
  26. AMLODIPINE BESYLATE [Concomitant]
     Active Substance: AMLODIPINE BESYLATE
     Indication: Product used for unknown indication
     Dates: end: 202301
  27. DIAPHAL [Concomitant]
     Indication: Product used for unknown indication
     Dates: end: 202301
  28. L THYROXIN AVENTIS [Concomitant]
     Indication: Product used for unknown indication
     Dates: end: 202301
  29. BISOPROLOL FUMARATE [Concomitant]
     Active Substance: BISOPROLOL FUMARATE
     Indication: Product used for unknown indication
     Dosage: 2.5 MILLIGRAM
     Dates: start: 202302
  30. SPIRIVA RESPIMAT [Concomitant]
     Active Substance: TIOTROPIUM BROMIDE
     Indication: Product used for unknown indication
  31. RAMIPRIL [Concomitant]
     Active Substance: RAMIPRIL
     Indication: Product used for unknown indication
     Dates: start: 202302
  32. SIMVASTATIN [Concomitant]
     Active Substance: SIMVASTATIN
     Indication: Product used for unknown indication
     Dates: start: 202302

REACTIONS (45)
  - Dyspnoea [Recovered/Resolved]
  - Hypothyroidism [Unknown]
  - Cardiac failure [Recovered/Resolved]
  - Motor dysfunction [Unknown]
  - Hypertension [Unknown]
  - Respiratory failure [Recovered/Resolved]
  - Mobility decreased [Recovered/Resolved]
  - General physical health deterioration [Recovered/Resolved]
  - Chronic obstructive pulmonary disease [Recovered/Resolved]
  - Hyperuricaemia [Unknown]
  - Renal cyst [Unknown]
  - Pneumonia [Unknown]
  - Bladder catheter permanent [Unknown]
  - Acute kidney injury [Unknown]
  - Hyperosmolar state [Unknown]
  - Pyrexia [Unknown]
  - Oedema peripheral [Unknown]
  - Breath sounds abnormal [Unknown]
  - Hypokalaemia [Unknown]
  - Disorientation [Unknown]
  - Pneumonia [Recovered/Resolved]
  - Hypernatraemia [Unknown]
  - Chronic obstructive pulmonary disease [Unknown]
  - Laboratory test abnormal [Unknown]
  - Pleural effusion [Unknown]
  - Dependence on respirator [Unknown]
  - Prostate cancer [Unknown]
  - Brain natriuretic peptide increased [Unknown]
  - Chronic kidney disease [Unknown]
  - Cardiac failure chronic [Unknown]
  - Escherichia test positive [Unknown]
  - Left ventricular failure [Unknown]
  - Urinary tract infection [Unknown]
  - Pulmonary vein occlusion [Unknown]
  - Tobacco abuse [Unknown]
  - Pneumonia [Unknown]
  - Urinary tract infection [Unknown]
  - Urinary incontinence [Unknown]
  - Respiratory failure [Unknown]
  - Obesity [Unknown]
  - Essential hypertension [Unknown]
  - Pneumonia [Unknown]
  - Diastolic dysfunction [Unknown]
  - Hypertensive heart disease [Unknown]
  - Nitrite urine present [Unknown]

NARRATIVE: CASE EVENT DATE: 20221201
